FAERS Safety Report 21931914 (Version 1)
Quarter: 2023Q1

REPORT INFORMATION
  Report Type: Spontaneous
  Country: MX (occurrence: MX)
  Receive Date: 20230131
  Receipt Date: 20230131
  Transmission Date: 20230417
  Serious: Yes (Hospitalization, Other)
  Sender: FDA-Public Use
  Company Number: MX-002147023-NVSC2022MX256922

PATIENT
  Age: 59 Year
  Sex: Male

DRUGS (4)
  1. MYCOPHENOLATE MOFETIL [Suspect]
     Active Substance: MYCOPHENOLATE MOFETIL
     Indication: Immunosuppressant drug therapy
     Dates: start: 2011
  2. CYCLOSPORINE [Suspect]
     Active Substance: CYCLOSPORINE
     Indication: Immunosuppressant drug therapy
     Dates: start: 2011
  3. DACLIZUMAB [Suspect]
     Active Substance: DACLIZUMAB
     Indication: Immunosuppressant drug therapy
     Dosage: CUMULATIVE DOSE: 80 MG
     Dates: start: 2011
  4. PREDNISONE [Suspect]
     Active Substance: PREDNISONE
     Indication: Immunosuppressant drug therapy
     Dates: start: 2011

REACTIONS (2)
  - Teratoma benign [Recovering/Resolving]
  - Extragonadal primary non-seminoma [Recovering/Resolving]

NARRATIVE: CASE EVENT DATE: 20201201
